FAERS Safety Report 4431601-2 (Version None)
Quarter: 2004Q3

REPORT INFORMATION
  Report Type: 
  Country: None (occurrence: None)
  Receive Date: 20040726
  Receipt Date: 20040329
  Transmission Date: 20050211
  Serious: Yes (Hospitalization)
  Sender: FDA-Public Use
  Company Number: REM_00053_2004

PATIENT
  Age: 41 Year
  Sex: Female
  Weight: 90 kg

DRUGS (4)
  1. REMODULIN [Suspect]
     Indication: PULMONARY HYPERTENSION
     Dosage: 12 NG/KG/MIN CONTINUOUS SC
     Route: 058
     Dates: start: 20040317
  2. REMODULIN [Suspect]
     Indication: PULMONARY HYPERTENSION
     Dosage: 26 NG/MG/MIN CONTINUOUS SC
     Route: 058
  3. FLOLAN [Concomitant]
  4. DEMADEX [Concomitant]

REACTIONS (2)
  - RIGHT VENTRICULAR FAILURE [None]
  - SYNCOPE [None]
